FAERS Safety Report 23134056 (Version 1)
Quarter: 2023Q4

REPORT INFORMATION
  Report Type: Spontaneous
  Country: US (occurrence: None)
  Receive Date: 20231031
  Receipt Date: 20231031
  Transmission Date: 20240110
  Serious: No
  Sender: FDA-Public Use
  Company Number: None

PATIENT
  Age: 80 Year
  Sex: Female

DRUGS (1)
  1. HUMIRA [Suspect]
     Active Substance: ADALIMUMAB
     Indication: Psoriasis
     Dosage: ?INJECT 80 MG (2 SYRINGES) ONN DAY 1 40 MG ( 1 SYRINGE) SUBCUTANEOUSLY ON DAY 8 THEN 40 MG EVERY
     Dates: start: 202005

REACTIONS (2)
  - Hospitalisation [None]
  - Intentional dose omission [None]
